FAERS Safety Report 10712783 (Version 1)
Quarter: 2015Q1

REPORT INFORMATION
  Report Type: Spontaneous
  Country: GB (occurrence: None)
  Receive Date: 20150113
  Receipt Date: 20150113
  Transmission Date: 20150721
  Serious: Yes (Other)
  Sender: FDA-Public Use
  Company Number: 2015047820

PATIENT
  Age: 07 Year
  Sex: Male
  Weight: 23.4 kg

DRUGS (2)
  1. DERMOL (CLOBETASOL PROPIONATE) [Concomitant]
  2. DESMOPRESSIN ACETATE. [Suspect]
     Active Substance: DESMOPRESSIN ACETATE
     Dates: start: 20141201

REACTIONS (2)
  - Headache [None]
  - Personality change [None]

NARRATIVE: CASE EVENT DATE: 20141204
